FAERS Safety Report 22173477 (Version 1)
Quarter: 2023Q2

REPORT INFORMATION
  Report Type: Spontaneous
  Country: RU (occurrence: RU)
  Receive Date: 20230404
  Receipt Date: 20230404
  Transmission Date: 20230722
  Serious: Yes (Hospitalization)
  Sender: FDA-Public Use
  Company Number: RU-009507513-2304RUS000413

PATIENT
  Age: 46 Year
  Sex: Female
  Weight: 82.2 kg

DRUGS (5)
  1. ISENTRESS [Suspect]
     Active Substance: RALTEGRAVIR POTASSIUM
     Indication: Antiretroviral therapy
     Dosage: 400 UNK
     Route: 048
     Dates: start: 20221230, end: 20230227
  2. ISENTRESS [Suspect]
     Active Substance: RALTEGRAVIR POTASSIUM
     Dosage: 400 MILLIGRAM
     Route: 048
     Dates: start: 20230228, end: 20230315
  3. LAMIVUDINE\ZIDOVUDINE [Suspect]
     Active Substance: LAMIVUDINE\ZIDOVUDINE
     Indication: Antiretroviral therapy
     Dosage: 300+150 BID
     Route: 048
     Dates: start: 20221230, end: 20230128
  4. LAMIVUDINE\ZIDOVUDINE [Suspect]
     Active Substance: LAMIVUDINE\ZIDOVUDINE
     Dosage: 300+150 BID
     Route: 048
     Dates: start: 20230129, end: 20230227
  5. LAMIVUDINE\ZIDOVUDINE [Suspect]
     Active Substance: LAMIVUDINE\ZIDOVUDINE
     Dosage: 300+150 BID
     Route: 048
     Dates: start: 20230228, end: 20230315

REACTIONS (3)
  - Asthenia [Not Recovered/Not Resolved]
  - Angina pectoris [Not Recovered/Not Resolved]
  - Blood test abnormal [Unknown]

NARRATIVE: CASE EVENT DATE: 20230301
